FAERS Safety Report 16426916 (Version 1)
Quarter: 2019Q3

REPORT INFORMATION
  Report Type: Spontaneous
  Country: US (occurrence: US)
  Receive Date: 20190612
  Receipt Date: 20190612
  Transmission Date: 20191004
  Serious: Yes (Other)
  Sender: FDA-Public Use
  Company Number: None

PATIENT
  Age: 53 Year
  Sex: Female
  Weight: 48.15 kg

DRUGS (1)
  1. BOTOX [Suspect]
     Active Substance: ONABOTULINUMTOXINA
     Indication: MIGRAINE
     Dosage: ?          QUANTITY:1 INJECTION(S);OTHER FREQUENCY:1 SESSION;OTHER ROUTE:INJECTIONS IN HEAD, NECK, SHOULDER AREA?
     Dates: start: 20190326, end: 20190326

REACTIONS (11)
  - Paralysis [None]
  - Wrong technique in product usage process [None]
  - Nausea [None]
  - Cartilage injury [None]
  - Product administration error [None]
  - Disorientation [None]
  - Nerve injury [None]
  - Migraine [None]
  - Hypoaesthesia [None]
  - Periarthritis [None]
  - Dizziness [None]

NARRATIVE: CASE EVENT DATE: 20190326
